FAERS Safety Report 4653542-8 (Version None)
Quarter: 2005Q2

REPORT INFORMATION
  Report Type: 
  Country: None (occurrence: None)
  Receive Date: 20050503
  Receipt Date: 20050315
  Transmission Date: 20051028
  Serious: Yes (Other)
  Sender: FDA-Public Use
  Company Number: 805#1#2005-00012

PATIENT
  Age: 3 Day
  Sex: Male

DRUGS (5)
  1. ALPROSTADIL [Suspect]
     Indication: HEART DISEASE CONGENITAL
     Dosage: SEE IMAGE
     Route: 041
     Dates: start: 20050112, end: 20050112
  2. ALPROSTADIL [Suspect]
     Indication: HEART DISEASE CONGENITAL
     Dosage: SEE IMAGE
     Route: 041
     Dates: start: 20050111, end: 20050112
  3. ALPROSTADIL [Suspect]
     Indication: HEART DISEASE CONGENITAL
     Dosage: SEE IMAGE
     Route: 041
     Dates: start: 20050112, end: 20050113
  4. ALPROSTADIL [Suspect]
     Indication: HEART DISEASE CONGENITAL
     Dosage: SEE IMAGE
     Route: 041
     Dates: start: 20050113, end: 20050117
  5. MIDAZOLAM HCL (MIDAZOLAM HCL) [Concomitant]

REACTIONS (10)
  - BLOOD PH DECREASED [None]
  - INTERRUPTION OF AORTIC ARCH [None]
  - NEONATAL DISORDER [None]
  - OXYGEN SATURATION DECREASED [None]
  - PULMONARY HAEMORRHAGE [None]
  - RESPIRATORY RATE DECREASED [None]
  - RESPIRATORY RATE INCREASED [None]
  - SHOCK [None]
  - TRACHEAL HAEMORRHAGE [None]
  - VENTRICULAR SEPTAL DEFECT [None]
